FAERS Safety Report 8350240-4 (Version None)
Quarter: 2012Q2

REPORT INFORMATION
  Report Type: 
  Country: None (occurrence: None)
  Receive Date: 20120510
  Receipt Date: 20120505
  Transmission Date: 20120825
  Serious: Yes (Hospitalization, Other)
  Sender: FDA-Public Use
  Company Number: PHHO2009GB14309

PATIENT
  Sex: Male
  Weight: 83 kg

DRUGS (18)
  1. ATENOLOL [Concomitant]
  2. NIFEDIPINE [Concomitant]
  3. INSULIN GLARGINE [Concomitant]
  4. PLACEBO [Suspect]
     Indication: CARDIOVASCULAR DISORDER
     Dosage: CODE NOT BROKEN
     Route: 048
     Dates: start: 20090512, end: 20091112
  5. BLINDED NO TREATMENT RECEIVED [Suspect]
     Dosage: CODE NOT BROKEN
     Route: 048
     Dates: start: 20091117
  6. PLACEBO [Suspect]
     Dosage: CODE NOT BROKEN
     Route: 048
     Dates: start: 20091117
  7. FENOFIBRATE [Concomitant]
  8. ATORVASTATIN CALCIUM [Concomitant]
  9. NOVORAPID [Concomitant]
  10. BLINDED ALISKIREN [Suspect]
     Indication: CARDIOVASCULAR DISORDER
     Dosage: CODE NOT BROKEN
     Route: 048
     Dates: start: 20090512, end: 20091112
  11. RAMIPRIL [Concomitant]
  12. EZETIMIBE [Concomitant]
  13. BLINDED NO TREATMENT RECEIVED [Suspect]
     Indication: CARDIOVASCULAR DISORDER
     Dosage: CODE NOT BROKEN
     Route: 048
     Dates: start: 20090512, end: 20091112
  14. BLINDED ALISKIREN [Suspect]
     Dosage: CODE NOT BROKEN
     Route: 048
     Dates: start: 20091117
  15. ALLOPURINOL [Concomitant]
  16. SILDENAFIL [Concomitant]
  17. METFORMIN HCL [Suspect]
  18. ACETYLSALICYLIC ACID SRT [Suspect]

REACTIONS (17)
  - OESOPHAGITIS [None]
  - PALLOR [None]
  - RENAL FAILURE CHRONIC [None]
  - DYSPLASIA [None]
  - RENAL IMPAIRMENT [None]
  - GASTROINTESTINAL HAEMORRHAGE [None]
  - HAEMOGLOBIN DECREASED [None]
  - BLOOD CREATININE INCREASED [None]
  - HAEMATOCRIT DECREASED [None]
  - RED BLOOD CELL COUNT DECREASED [None]
  - LETHARGY [None]
  - ADENOMA BENIGN [None]
  - MELAENA [None]
  - DUODENITIS [None]
  - MALAISE [None]
  - GASTROINTESTINAL INFLAMMATION [None]
  - HAEMORRHAGE [None]
